FAERS Safety Report 18210953 (Version 1)
Quarter: 2020Q3

REPORT INFORMATION
  Report Type: Spontaneous
  Country: JP (occurrence: JP)
  Receive Date: 20200830
  Receipt Date: 20200830
  Transmission Date: 20201103
  Serious: Yes (Hospitalization)
  Sender: FDA-Public Use
  Company Number: JP-SA-2020SA226961

PATIENT

DRUGS (5)
  1. ELPLAT [Suspect]
     Active Substance: OXALIPLATIN
     Dosage: UNK, QOW
     Route: 041
  2. CAPECITABINE. [Concomitant]
     Active Substance: CAPECITABINE
  3. ELPLAT [Suspect]
     Active Substance: OXALIPLATIN
     Indication: COLON CANCER
     Dosage: UNK UNK, Q3W
     Route: 041
  4. LEVOFOLINATE CALCIUM [Concomitant]
     Active Substance: LEVOLEUCOVORIN CALCIUM
  5. FLUOROURACIL. [Concomitant]
     Active Substance: FLUOROURACIL

REACTIONS (2)
  - Portal shunt [Recovered/Resolved]
  - Malaise [Unknown]
